FAERS Safety Report 11880894 (Version 2)
Quarter: 2016Q2

REPORT INFORMATION
  Report Type: Report from Study
  Country: BE (occurrence: BE)
  Receive Date: 20151230
  Receipt Date: 20160426
  Transmission Date: 20160815
  Serious: Yes (Hospitalization)
  Sender: FDA-Public Use
  Company Number: BE-ABBVIE-15P-013-1452562-00

PATIENT
  Sex: Female

DRUGS (11)
  1. DUODOPA [Suspect]
     Active Substance: CARBIDOPA\LEVODOPA
     Dosage: AM = 5 ML; CD= 2 ML/H DURING 16 HRS; ED = 1 ML
     Route: 050
     Dates: start: 20160420
  2. DUODOPA [Suspect]
     Active Substance: CARBIDOPA\LEVODOPA
     Dosage: DOSES CONTINUOUSLY MONITORED AND ADAPTED
     Route: 050
     Dates: start: 20140613, end: 20150605
  3. INDERAL [Concomitant]
     Active Substance: PROPRANOLOL HYDROCHLORIDE
     Indication: PRODUCT USED FOR UNKNOWN INDICATION
  4. DUODOPA [Suspect]
     Active Substance: CARBIDOPA\LEVODOPA
     Dosage: AM=5ML; CD=2.1ML/HR DURING 16HRS; ED=1ML
     Route: 050
     Dates: start: 20151013, end: 20151218
  5. ESCITALOPRAM [Concomitant]
     Active Substance: ESCITALOPRAM OXALATE
     Indication: PRODUCT USED FOR UNKNOWN INDICATION
  6. DUODOPA [Suspect]
     Active Substance: CARBIDOPA\LEVODOPA
     Dosage: AM=5ML; CD=2.2ML/HR DURING 16HRS; ED=1ML
     Route: 050
     Dates: start: 20150605, end: 20151013
  7. DUODOPA [Suspect]
     Active Substance: CARBIDOPA\LEVODOPA
     Dosage: AM = 5 ML; CD= 2 ML/H DURING 16 HRS; ED = 1 ML
     Route: 050
     Dates: start: 20160420, end: 20160420
  8. DUODOPA [Suspect]
     Active Substance: CARBIDOPA\LEVODOPA
     Dosage: AM=5ML; CD=2ML/H FOR 16HRS; ED=1ML
     Route: 050
     Dates: start: 20151218, end: 20160420
  9. DUODOPA [Suspect]
     Active Substance: CARBIDOPA\LEVODOPA
     Indication: PARKINSON^S DISEASE
     Dosage: AM=6.5ML; CD=2.5ML/HR DURING 16HRS; ED=1ML
     Route: 050
     Dates: start: 20140610, end: 20140613
  10. DAFALGAN [Concomitant]
     Active Substance: ACETAMINOPHEN
     Indication: PRODUCT USED FOR UNKNOWN INDICATION
  11. PROLOPA [Concomitant]
     Active Substance: BENSERAZIDE\LEVODOPA
     Indication: PRODUCT USED FOR UNKNOWN INDICATION
     Dosage: FORM STRENGTH: 200MG/50MG, UNIT DOSE: 0.5 TO 0.75 TAB

REACTIONS (12)
  - Catheter site nodule [Unknown]
  - Stoma site pain [Unknown]
  - Infection [Unknown]
  - Dyskinesia [Unknown]
  - Stoma site infection [Unknown]
  - Device alarm issue [Unknown]
  - Stoma site discharge [Unknown]
  - Device occlusion [Recovered/Resolved]
  - Stoma site discharge [Not Recovered/Not Resolved]
  - Keloid scar [Not Recovered/Not Resolved]
  - Incorrect route of drug administration [Recovered/Resolved]
  - Excessive granulation tissue [Not Recovered/Not Resolved]
